FAERS Safety Report 4477749-8 (Version None)
Quarter: 2004Q4

REPORT INFORMATION
  Report Type: 
  Country: None (occurrence: None)
  Receive Date: 20041014
  Receipt Date: 20040929
  Transmission Date: 20050328
  Serious: Yes (Death)
  Sender: FDA-Public Use
  Company Number: 2004S1000203

PATIENT
  Age: 49 Year
  Sex: Male
  Weight: 65 kg

DRUGS (5)
  1. CUBICIN [Suspect]
     Indication: ENDOCARDITIS
     Dosage: 360 MG;Q48H; IV
     Route: 042
     Dates: start: 20040817, end: 20040908
  2. CUBICIN [Suspect]
     Indication: STAPHYLOCOCCAL INFECTION
     Dosage: 360 MG;Q48H; IV
     Route: 042
     Dates: start: 20040817, end: 20040908
  3. VANCOMYCIN [Concomitant]
  4. RIFAMPICIN [Concomitant]
  5. GENTAMYCIN SULFATE [Concomitant]

REACTIONS (4)
  - COAGULOPATHY [None]
  - CONDITION AGGRAVATED [None]
  - ENDOCARDITIS [None]
  - VASCULAR ACCESS COMPLICATION [None]
